FAERS Safety Report 7014893-5 (Version None)
Quarter: 2010Q3

REPORT INFORMATION
  Report Type: 
  Country: None (occurrence: None)
  Receive Date: 20100927
  Receipt Date: 20100311
  Transmission Date: 20110219
  Serious: No
  Sender: FDA-Public Use
  Company Number: US-ASTRAZENECA-2010SE10695

PATIENT
  Sex: Female
  Weight: 65.8 kg

DRUGS (4)
  1. ARIMIDEX [Suspect]
     Indication: BREAST CANCER
     Route: 048
     Dates: start: 20090901
  2. LISINOPRIL [Concomitant]
  3. AMLODIPINE [Concomitant]
  4. NORVASC [Concomitant]

REACTIONS (3)
  - BACK PAIN [None]
  - HOT FLUSH [None]
  - TREMOR [None]
